FAERS Safety Report 10030192 (Version 2)
Quarter: 2014Q1

REPORT INFORMATION
  Report Type: Spontaneous
  Country: US (occurrence: US)
  Receive Date: 20140323
  Receipt Date: 20140323
  Transmission Date: 20141002
  Serious: No
  Sender: FDA-Public Use
  Company Number: US-ALLERGAN-1309402US

PATIENT
  Age: 63 Year
  Sex: Female

DRUGS (4)
  1. LATISSE 0.03% [Suspect]
     Indication: GROWTH OF EYELASHES
     Dosage: 1 GTT, QHS
     Route: 061
     Dates: end: 20130702
  2. LATISSE 0.03% [Suspect]
     Dosage: 2 GTT, QHS
     Route: 061
     Dates: start: 20130509
  3. LEVOTHYROXINE [Concomitant]
     Indication: HYPOTHYROIDISM
     Dosage: 25 ?G, QD
     Route: 048
  4. GABAPENTIN [Concomitant]
     Indication: CYSTITIS INTERSTITIAL
     Dosage: 900 MG, QD
     Route: 048

REACTIONS (8)
  - Conjunctivitis [Unknown]
  - Drug hypersensitivity [Unknown]
  - Skin discolouration [Recovered/Resolved]
  - Wrong technique in drug usage process [Unknown]
  - Accidental exposure to product [Unknown]
  - Wrong technique in drug usage process [Unknown]
  - Incorrect dose administered [Unknown]
  - Scleral hyperaemia [Recovered/Resolved]
